FAERS Safety Report 21351924 (Version 1)
Quarter: 2022Q3

REPORT INFORMATION
  Report Type: Spontaneous
  Country: US (occurrence: US)
  Receive Date: 20220920
  Receipt Date: 20220920
  Transmission Date: 20221027
  Serious: No
  Sender: FDA-Public Use
  Company Number: US-AMGEN-USASP2022156939

PATIENT
  Age: 82 Year
  Sex: Female

DRUGS (1)
  1. REPATHA [Suspect]
     Active Substance: EVOLOCUMAB
     Indication: Blood cholesterol increased
     Dosage: 140 MILLIGRAM, Q2WK
     Route: 058

REACTIONS (8)
  - Pain in extremity [Unknown]
  - Pyrexia [Unknown]
  - Muscle spasms [Unknown]
  - Injection site induration [Unknown]
  - Injection site erythema [Unknown]
  - Injection site pruritus [Unknown]
  - Rash [Unknown]
  - Arthralgia [Unknown]

NARRATIVE: CASE EVENT DATE: 20220907
